FAERS Safety Report 6895319-9 (Version None)
Quarter: 2010Q3

REPORT INFORMATION
  Report Type: 
  Country: None (occurrence: None)
  Receive Date: 20100708
  Receipt Date: 20090908
  Transmission Date: 20110219
  Serious: Yes (Other)
  Sender: FDA-Public Use
  Company Number: 2009267172

PATIENT
  Age: 54 Year
  Sex: Female
  Weight: 76.2 kg

DRUGS (1)
  1. CHANTIX [Suspect]
     Indication: SMOKING CESSATION THERAPY
     Dosage: ORAL
     Route: 048
     Dates: start: 20090827

REACTIONS (11)
  - ABNORMAL DREAMS [None]
  - FATIGUE [None]
  - HEADACHE [None]
  - INSOMNIA [None]
  - MEMORY IMPAIRMENT [None]
  - NAUSEA [None]
  - PAIN [None]
  - PALPITATIONS [None]
  - PARANOIA [None]
  - POLLAKIURIA [None]
  - TREMOR [None]
